FAERS Safety Report 14006331 (Version 1)
Quarter: 2017Q3

REPORT INFORMATION
  Report Type: Spontaneous
  Country: US (occurrence: US)
  Receive Date: 20170924
  Receipt Date: 20170924
  Transmission Date: 20171128
  Serious: Yes (Death, Hospitalization)
  Sender: FDA-Public Use
  Company Number: US-JNJFOC-20170917969

PATIENT
  Age: 51 Year
  Sex: Female

DRUGS (2)
  1. ACETAMINOPHEN. [Suspect]
     Active Substance: ACETAMINOPHEN
     Route: 065
  2. ACETAMINOPHEN. [Suspect]
     Active Substance: ACETAMINOPHEN
     Indication: PRODUCT USED FOR UNKNOWN INDICATION
     Route: 065

REACTIONS (16)
  - Hepatotoxicity [Fatal]
  - Metabolic acidosis [Fatal]
  - Bradypnoea [Fatal]
  - Respiratory depression [Fatal]
  - Leukocytosis [Fatal]
  - Bradycardia [Fatal]
  - Thrombocytopenia [Fatal]
  - Hypotension [Fatal]
  - Ventricular arrhythmia [Fatal]
  - Haemolysis [Fatal]
  - Acute kidney injury [Fatal]
  - Coagulopathy [Fatal]
  - Toxicity to various agents [Fatal]
  - Tachycardia [Fatal]
  - Acute respiratory distress syndrome [Fatal]
  - Coma [Fatal]
